FAERS Safety Report 9979541 (Version 2)
Quarter: 2014Q1

REPORT INFORMATION
  Report Type: Report from Study
  Country: US (occurrence: US)
  Receive Date: 20140306
  Receipt Date: 20140306
  Transmission Date: 20141002
  Serious: No
  Sender: FDA-Public Use
  Company Number: US-ABBVIE-13P-163-1160217-00

PATIENT
  Age: 53 Year
  Sex: Male

DRUGS (3)
  1. HUMIRA [Suspect]
     Indication: CROHN^S DISEASE
  2. SULFASALAZINE [Concomitant]
     Indication: CROHN^S DISEASE
  3. MERCAPTOPURINE [Concomitant]
     Indication: CROHN^S DISEASE

REACTIONS (7)
  - Gingival pain [Not Recovered/Not Resolved]
  - Pain in jaw [Not Recovered/Not Resolved]
  - Malaise [Not Recovered/Not Resolved]
  - Tooth disorder [Recovering/Resolving]
  - Endodontic procedure [Recovering/Resolving]
  - Swelling face [Recovering/Resolving]
  - Gingival swelling [Recovering/Resolving]
